FAERS Safety Report 22528478 (Version 2)
Quarter: 2024Q2

REPORT INFORMATION
  Report Type: Report from Study
  Country: CA (occurrence: CA)
  Receive Date: 20230607
  Receipt Date: 20240403
  Transmission Date: 20240716
  Serious: Yes (Other)
  Sender: FDA-Public Use
  Company Number: None

PATIENT
  Age: 54 Year
  Sex: Female

DRUGS (7)
  1. ESCITALOPRAM [Suspect]
     Active Substance: ESCITALOPRAM OXALATE
     Indication: Product used for unknown indication
     Route: 048
  2. CEPHALEXIN [Concomitant]
     Active Substance: CEPHALEXIN
     Indication: Product used for unknown indication
     Dosage: UNK, QD
     Route: 048
  3. CITRIC ACID [Concomitant]
     Active Substance: CITRIC ACID MONOHYDRATE
     Indication: Product used for unknown indication
     Route: 065
  4. MAGNESIUM OXIDE [Concomitant]
     Active Substance: MAGNESIUM OXIDE
     Indication: Product used for unknown indication
     Route: 065
  5. SODIUM PICOSULFATE [Concomitant]
     Active Substance: SODIUM PICOSULFATE
     Indication: Product used for unknown indication
     Route: 065
  6. RECAL [Concomitant]
     Indication: Product used for unknown indication
     Route: 065
  7. Reactine [Concomitant]
     Indication: Product used for unknown indication
     Route: 065

REACTIONS (8)
  - Dysplastic naevus [Unknown]
  - Allergy to animal [Unknown]
  - Angioedema [Unknown]
  - Rosacea [Unknown]
  - Swelling face [Unknown]
  - Malignant melanoma in situ [Unknown]
  - Rhinitis allergic [Not Recovered/Not Resolved]
  - Seasonal allergy [Unknown]

NARRATIVE: CASE EVENT DATE: 20160101
